FAERS Safety Report 15902290 (Version 1)
Quarter: 2019Q1

REPORT INFORMATION
  Report Type: Spontaneous
  Country: US (occurrence: US)
  Receive Date: 20190201
  Receipt Date: 20190201
  Transmission Date: 20190417
  Serious: No
  Sender: FDA-Public Use
  Company Number: US-GLAXOSMITHKLINE-US2019GSK016704

PATIENT
  Age: 58 Year
  Sex: Female

DRUGS (1)
  1. BENLYSTA [Suspect]
     Active Substance: BELIMUMAB
     Indication: PRODUCT USED FOR UNKNOWN INDICATION
     Dosage: UNK

REACTIONS (7)
  - Swelling [Unknown]
  - Anaemia [Unknown]
  - Musculoskeletal disorder [Unknown]
  - Headache [Unknown]
  - Neck pain [Unknown]
  - Insomnia [Unknown]
  - Blood viscosity decreased [Unknown]
